FAERS Safety Report 24206141 (Version 1)
Quarter: 2024Q3

REPORT INFORMATION
  Report Type: Spontaneous
  Country: AU (occurrence: None)
  Receive Date: 20240813
  Receipt Date: 20240813
  Transmission Date: 20241017
  Serious: Yes (Hospitalization)
  Sender: ASTRAZENECA
  Company Number: 2024A177429

PATIENT
  Age: 83 Year
  Sex: Male

DRUGS (1)
  1. OSIMERTINIB [Suspect]
     Active Substance: OSIMERTINIB
     Indication: Non-small cell lung cancer metastatic
     Dosage: UNKNOWN UNKNOWN
     Route: 048
     Dates: start: 20240517, end: 20240602

REACTIONS (4)
  - Drug-induced liver injury [Recovered/Resolved]
  - Hypertransaminasaemia [Recovered/Resolved]
  - Lethargy [Unknown]
  - Rhinitis [Unknown]

NARRATIVE: CASE EVENT DATE: 20240602
